FAERS Safety Report 5996196-0 (Version None)
Quarter: 2008Q4

REPORT INFORMATION
  Report Type: 
  Country: None (occurrence: None)
  Receive Date: 20081212
  Receipt Date: 20081010
  Transmission Date: 20090506
  Serious: No
  Sender: FDA-Public Use
  Company Number: US-ABBOTT-08P-163-0481346-00

PATIENT
  Sex: Male
  Weight: 98.972 kg

DRUGS (5)
  1. HUMIRA [Suspect]
     Indication: PSORIASIS
     Route: 058
     Dates: start: 20080501
  2. HUMIRA [Suspect]
     Indication: PSORIATIC ARTHROPATHY
  3. METFORMIN HCL [Concomitant]
     Indication: DIABETES MELLITUS
  4. GLIPIZIDE [Concomitant]
     Indication: DIABETES MELLITUS
  5. HYDROXYZINE [Concomitant]
     Indication: HYPERSENSITIVITY

REACTIONS (3)
  - ACCIDENTAL EXPOSURE [None]
  - INJECTION SITE IRRITATION [None]
  - INJECTION SITE PAIN [None]
